FAERS Safety Report 5491777-5 (Version None)
Quarter: 2007Q4

REPORT INFORMATION
  Report Type: 
  Country: None (occurrence: None)
  Receive Date: 20071019
  Receipt Date: 20071019
  Transmission Date: 20080405
  Serious: No
  Sender: FDA-Public Use
  Company Number: None

PATIENT

DRUGS (1)
  1. LEVETIRACETAM [Suspect]
     Dosage: 1GM/100ML OVER 1 HR

REACTIONS (3)
  - BLOOD PRESSURE SYSTOLIC DECREASED [None]
  - INFUSION RELATED REACTION [None]
  - MEAN ARTERIAL PRESSURE DECREASED [None]
